FAERS Safety Report 10096211 (Version 1)
Quarter: 2014Q2

REPORT INFORMATION
  Report Type: Spontaneous
  Country: CA (occurrence: CA)
  Receive Date: 20140422
  Receipt Date: 20140422
  Transmission Date: 20141212
  Serious: Yes (Hospitalization, Other)
  Sender: FDA-Public Use
  Company Number: CA-BAYER-2014-053113

PATIENT
  Age: 65 Year
  Sex: Male

DRUGS (21)
  1. MOXIFLOXACIN ORAL [Suspect]
     Indication: DIABETIC FOOT INFECTION
     Dosage: UNK
     Route: 048
  2. ATORVASTATIN [Concomitant]
  3. FELODIPINE [Concomitant]
  4. METOLAZONE [Concomitant]
  5. METOPROLOL [Concomitant]
  6. ALFACALCIDOL [Concomitant]
  7. CALCIUM ACETATE [Concomitant]
  8. FUROSEMIDE [Concomitant]
  9. INSULIN ASPART [Concomitant]
  10. INSULIN GLARGINE [Concomitant]
  11. FERROUS GLUCONATE [Concomitant]
  12. OXAZEPAM [Concomitant]
  13. DOCUSATE [Concomitant]
  14. SENNOSIDE [Concomitant]
  15. PANTOPRAZOLE [Concomitant]
  16. HYDROMORPHONE [Concomitant]
  17. MULTIVITAMIN [Concomitant]
  18. HEPARIN [Concomitant]
     Dosage: THRICE WEEKLY
  19. HEPARIN [Concomitant]
     Dosage: 5000 UNITS/ML INTO EACH CATHETER LUMEN WITH DAPTOMYCIN
     Route: 050
  20. VANCOMYCIN [Concomitant]
     Indication: INFECTED SKIN ULCER
     Route: 042
  21. PIPERACILLIN W/TAZOBACTAM [Concomitant]
     Indication: INFECTED SKIN ULCER
     Route: 042

REACTIONS (10)
  - Device related sepsis [Recovered/Resolved]
  - Thrombocytopenia [Recovered/Resolved]
  - Immune thrombocytopenic purpura [None]
  - Immune thrombocytopenic purpura [None]
  - Device related infection [Recovered/Resolved]
  - Petechiae [None]
  - Contusion [None]
  - Mouth haemorrhage [Recovered/Resolved]
  - Malaise [None]
  - Pyrexia [None]
